FAERS Safety Report 11804481 (Version 1)
Quarter: 2015Q4

REPORT INFORMATION
  Report Type: Spontaneous
  Country: FR (occurrence: FR)
  Receive Date: 20151204
  Receipt Date: 20151204
  Transmission Date: 20160305
  Serious: Yes (Hospitalization, Other)
  Sender: FDA-Public Use
  Company Number: FR-GILEAD-2015-0185512

PATIENT
  Age: 55 Year
  Sex: Male

DRUGS (12)
  1. METHADONE [Concomitant]
     Active Substance: METHADONE HYDROCHLORIDE
  2. NORVIR [Concomitant]
     Active Substance: RITONAVIR
  3. SOFOSBUVIR [Suspect]
     Active Substance: SOFOSBUVIR
     Indication: CHRONIC HEPATITIS C
     Dosage: 400 MG, QD
     Route: 048
     Dates: start: 20140915, end: 201411
  4. DACLATASVIR. [Suspect]
     Active Substance: DACLATASVIR
     Indication: CHRONIC HEPATITIS C
     Dosage: 30 MG, QD
     Route: 048
     Dates: start: 20140915, end: 201411
  5. ISENTRESS [Concomitant]
     Active Substance: RALTEGRAVIR POTASSIUM
  6. NOCTAMIDE [Concomitant]
     Active Substance: LORMETAZEPAM
  7. REYATAZ [Concomitant]
     Active Substance: ATAZANAVIR SULFATE
  8. MIANSERINE [Concomitant]
     Active Substance: MIANSERIN HYDROCHLORIDE
  9. VIREAD [Concomitant]
     Active Substance: TENOFOVIR DISOPROXIL FUMARATE
  10. RIBAVIRIN. [Suspect]
     Active Substance: RIBAVIRIN
     Indication: CHRONIC HEPATITIS C
     Dosage: UNK
     Route: 065
     Dates: start: 20140915, end: 201411
  11. SERESTA [Concomitant]
     Active Substance: OXAZEPAM
  12. UVEDOSE [Concomitant]
     Active Substance: CHOLECALCIFEROL

REACTIONS (3)
  - Hepatic encephalopathy [Recovered/Resolved]
  - Hepatocellular carcinoma [Unknown]
  - Anxiety [Recovered/Resolved]

NARRATIVE: CASE EVENT DATE: 20141107
